FAERS Safety Report 11137768 (Version 2)
Quarter: 2015Q3

REPORT INFORMATION
  Report Type: Report from Study
  Country: JP (occurrence: JP)
  Receive Date: 20150526
  Receipt Date: 20150803
  Transmission Date: 20151125
  Serious: Yes (Death, Other)
  Sender: FDA-Public Use
  Company Number: JP-EISAI MEDICAL RESEARCH-EC-2015-005423

PATIENT
  Age: 60 Year
  Sex: Female
  Weight: 55 kg

DRUGS (9)
  1. GLYPHAGEN [Concomitant]
  2. ACINON [Concomitant]
     Active Substance: NIZATIDINE
  3. LASIX [Concomitant]
     Active Substance: FUROSEMIDE
  4. KENALOG [Concomitant]
     Active Substance: TRIAMCINOLONE ACETONIDE
  5. HALAVEN [Suspect]
     Active Substance: ERIBULIN MESYLATE
     Indication: BREAST CANCER RECURRENT
     Route: 041
     Dates: start: 20150314, end: 20150320
  6. URSO [Concomitant]
     Active Substance: URSODIOL
  7. TRAMAL [Concomitant]
     Active Substance: TRAMADOL
  8. ALDACTONE A [Concomitant]
     Active Substance: SPIRONOLACTONE
  9. ADELAVIN-NO.9 [Concomitant]

REACTIONS (2)
  - Malignant neoplasm progression [Fatal]
  - Neutropenia [Not Recovered/Not Resolved]

NARRATIVE: CASE EVENT DATE: 20150323
